FAERS Safety Report 7177782-1 (Version None)
Quarter: 2010Q4

REPORT INFORMATION
  Report Type: 
  Country: None (occurrence: None)
  Receive Date: 20101220
  Receipt Date: 20101213
  Transmission Date: 20110411
  Serious: No
  Sender: FDA-Public Use
  Company Number: US-ROXANE LABORATORIES, INC.-2010-RO-01685RO

PATIENT
  Sex: Male

DRUGS (3)
  1. FLUTICASONE PROPIONATE [Suspect]
     Indication: GASTROOESOPHAGEAL REFLUX DISEASE
     Route: 045
     Dates: start: 20080101
  2. NEXIUM [Concomitant]
     Indication: GASTROOESOPHAGEAL REFLUX DISEASE
     Dosage: 40 MG
     Route: 048
  3. ASPIRIN [Concomitant]
     Dosage: 81 MG
     Route: 048

REACTIONS (1)
  - ORAL DISCOMFORT [None]
